FAERS Safety Report 10346355 (Version 2)
Quarter: 2014Q4

REPORT INFORMATION
  Report Type: Report from Study
  Country: JP (occurrence: JP)
  Receive Date: 20140728
  Receipt Date: 20141112
  Transmission Date: 20150528
  Serious: Yes (Death, Hospitalization)
  Sender: FDA-Public Use
  Company Number: PHHY2013JP158962

PATIENT
  Age: 72 Year
  Sex: Male

DRUGS (11)
  1. BLOPRESS [Concomitant]
     Active Substance: CANDESARTAN CILEXETIL
     Indication: PRODUCT USED FOR UNKNOWN INDICATION
     Dosage: 8 MG, UNK
     Route: 048
  2. ARGAMATE [Concomitant]
     Active Substance: POLYSTYRENE
     Indication: PRODUCT USED FOR UNKNOWN INDICATION
     Dosage: 50 MG, UNK
     Route: 048
  3. AMN107 [Suspect]
     Active Substance: NILOTINIB
     Dosage: 400 MG, PER DAY
     Route: 048
     Dates: start: 20100129
  4. RIBALL [Concomitant]
     Active Substance: ALLOPURINOL
     Indication: PRODUCT USED FOR UNKNOWN INDICATION
     Dosage: 100 MG, UNK
     Route: 048
  5. ARTIST [Concomitant]
     Active Substance: CARVEDILOL
     Indication: PRODUCT USED FOR UNKNOWN INDICATION
     Dosage: 10 MG, UNK
     Route: 048
  6. AMN107 [Suspect]
     Active Substance: NILOTINIB
     Indication: CHRONIC MYELOID LEUKAEMIA
     Dosage: 200 MG, DAILY
     Route: 048
     Dates: start: 20091116, end: 20100128
  7. MYSLEE [Concomitant]
     Active Substance: ZOLPIDEM TARTRATE
     Indication: PRODUCT USED FOR UNKNOWN INDICATION
     Dosage: 5 MG, UNK
     Route: 048
  8. LIPITOR [Concomitant]
     Active Substance: ATORVASTATIN CALCIUM
     Indication: PRODUCT USED FOR UNKNOWN INDICATION
     Dosage: 10 MG, UNK
     Route: 048
  9. PANALDINE [Concomitant]
     Active Substance: TICLOPIDINE HYDROCHLORIDE
     Indication: PRODUCT USED FOR UNKNOWN INDICATION
     Dosage: 200 MG, UNK
     Route: 048
  10. LASIX [Concomitant]
     Active Substance: FUROSEMIDE
     Indication: PRODUCT USED FOR UNKNOWN INDICATION
     Dosage: 40 MG, UNK
     Route: 048
  11. HERBESSER [Concomitant]
     Active Substance: DILTIAZEM HYDROCHLORIDE
     Indication: PRODUCT USED FOR UNKNOWN INDICATION
     Dosage: 30 MG, UNK
     Route: 048

REACTIONS (8)
  - Acute hepatic failure [Fatal]
  - Electrocardiogram QT prolonged [Unknown]
  - Diarrhoea [Recovering/Resolving]
  - Haemoglobin decreased [Unknown]
  - Blood potassium increased [Unknown]
  - Pleural effusion [Unknown]
  - Pneumonia [Recovering/Resolving]
  - Red blood cell count decreased [Unknown]

NARRATIVE: CASE EVENT DATE: 20100528
